FAERS Safety Report 7169904-3 (Version None)
Quarter: 2010Q4

REPORT INFORMATION
  Report Type: 
  Country: None (occurrence: None)
  Receive Date: 20101214
  Receipt Date: 20101214
  Transmission Date: 20110411
  Serious: Yes (Hospitalization)
  Sender: FDA-Public Use
  Company Number: None

PATIENT
  Sex: Female
  Weight: 59.42 kg

DRUGS (2)
  1. TAXOL [Suspect]
     Dosage: 291 MG
  2. TOPOTECAN [Suspect]
     Dosage: 1.2 MG

REACTIONS (3)
  - CHILLS [None]
  - PYREXIA [None]
  - UROSEPSIS [None]
